FAERS Safety Report 24951929 (Version 1)
Quarter: 2025Q1

REPORT INFORMATION
  Report Type: Report from Study
  Country: CA (occurrence: CA)
  Receive Date: 20250210
  Receipt Date: 20250210
  Transmission Date: 20250409
  Serious: Yes (Death, Other)
  Sender: SANDOZ
  Company Number: CA-SANDOZ-SDZ2025CA007404

PATIENT
  Age: 64 Year
  Sex: Female

DRUGS (3)
  1. WYOST [Suspect]
     Active Substance: DENOSUMAB-BBDZ
     Indication: Breast cancer
     Route: 058
     Dates: start: 20241108
  2. WYOST [Suspect]
     Active Substance: DENOSUMAB-BBDZ
     Indication: Metastases to bone
  3. WYOST [Suspect]
     Active Substance: DENOSUMAB-BBDZ
     Indication: Musculoskeletal disorder prophylaxis

REACTIONS (1)
  - Death [Fatal]

NARRATIVE: CASE EVENT DATE: 20241201
